FAERS Safety Report 19068625 (Version 1)
Quarter: 2021Q1

REPORT INFORMATION
  Report Type: Spontaneous
  Country: US (occurrence: US)
  Receive Date: 20210327
  Receipt Date: 20210327
  Transmission Date: 20210420
  Serious: Yes (Disabling, Other)
  Sender: FDA-Public Use
  Company Number: None

PATIENT
  Age: 20 Year
  Sex: Female
  Weight: 63 kg

DRUGS (13)
  1. COLCHICINE. [Concomitant]
     Active Substance: COLCHICINE
  2. ADDERALL [Concomitant]
     Active Substance: AMPHETAMINE ASPARTATE\AMPHETAMINE SULFATE\DEXTROAMPHETAMINE SACCHARATE\DEXTROAMPHETAMINE SULFATE
  3. ORAL CONTRACEPTIVE [Concomitant]
     Active Substance: UNSPECIFIED INGREDIENT
  4. PLAQUENIL [Concomitant]
     Active Substance: HYDROXYCHLOROQUINE SULFATE
  5. TENEX [Concomitant]
     Active Substance: GUANFACINE HYDROCHLORIDE
  6. ZYRTEC [Concomitant]
     Active Substance: CETIRIZINE HYDROCHLORIDE
  7. IMURAN [Concomitant]
     Active Substance: AZATHIOPRINE
  8. LAMICTAL [Suspect]
     Active Substance: LAMOTRIGINE
     Indication: AUTISM SPECTRUM DISORDER
     Dates: end: 20200501
  9. SEROQUEL [Concomitant]
     Active Substance: QUETIAPINE FUMARATE
  10. TRILEPTAL [Concomitant]
     Active Substance: OXCARBAZEPINE
  11. LAMICTAL [Suspect]
     Active Substance: LAMOTRIGINE
     Indication: AFFECTIVE DISORDER
     Dates: end: 20200501
  12. ASA [Concomitant]
     Active Substance: ASPIRIN
  13. MULTIVITAMIN [Concomitant]
     Active Substance: VITAMINS

REACTIONS (8)
  - Autoinflammatory disease [None]
  - Autoimmune disorder [None]
  - Condition aggravated [None]
  - Dermatitis [None]
  - Rash [None]
  - Genital ulceration [None]
  - Mouth ulceration [None]
  - Pyrexia [None]

NARRATIVE: CASE EVENT DATE: 20191129
